FAERS Safety Report 17019665 (Version 6)
Quarter: 2021Q4

REPORT INFORMATION
  Report Type: Report from Study
  Country: US (occurrence: US)
  Receive Date: 20191112
  Receipt Date: 20211126
  Transmission Date: 20220303
  Serious: Yes (Hospitalization, Other)
  Sender: FDA-Public Use
  Company Number: US-SHIRE-US201938413

PATIENT
  Age: 61 Year
  Sex: Female

DRUGS (2)
  1. HUMAN IMMUNOGLOBULIN G [Suspect]
     Active Substance: HUMAN IMMUNOGLOBULIN G
     Indication: Primary immunodeficiency syndrome
     Dosage: UNK
     Route: 042
  2. CUVITRU [Suspect]
     Active Substance: HUMAN IMMUNOGLOBULIN G
     Indication: Primary immunodeficiency syndrome
     Dosage: UNK
     Route: 065
     Dates: start: 201910

REACTIONS (16)
  - Adverse drug reaction [Unknown]
  - Barrett^s oesophagus [Unknown]
  - Rheumatoid arthritis [Unknown]
  - Inguinal hernia [Unknown]
  - Feeling abnormal [Unknown]
  - Malaise [Unknown]
  - Insurance issue [Unknown]
  - Weight decreased [Unknown]
  - Raynaud^s phenomenon [Unknown]
  - Oesophageal disorder [Unknown]
  - Hiatus hernia [Unknown]
  - Cortisol decreased [Unknown]
  - Polycystic ovaries [Unknown]
  - Endocrine disorder [Unknown]
  - Feeling abnormal [Unknown]
  - Mental disorder [Unknown]

NARRATIVE: CASE EVENT DATE: 20211115
